FAERS Safety Report 5654868-1 (Version None)
Quarter: 2008Q1

REPORT INFORMATION
  Report Type: 
  Country: None (occurrence: None)
  Receive Date: 20080307
  Receipt Date: 20070817
  Transmission Date: 20080703
  Serious: Yes (Other)
  Sender: FDA-Public Use
  Company Number: A0671256A

PATIENT
  Age: 50 Year
  Sex: Male

DRUGS (5)
  1. REQUIP [Suspect]
     Indication: RESTLESS LEGS SYNDROME
     Dosage: 1.5MG SEE DOSAGE TEXT
     Route: 048
     Dates: start: 20070727
  2. SUDAFED 12 HOUR [Concomitant]
  3. ZYRTEC [Concomitant]
  4. SYNTHROID [Concomitant]
  5. AMBIEN [Concomitant]

REACTIONS (4)
  - APNOEA [None]
  - LIBIDO INCREASED [None]
  - MEDICATION ERROR [None]
  - NASAL CONGESTION [None]
